FAERS Safety Report 10384560 (Version 1)
Quarter: 2014Q3

REPORT INFORMATION
  Report Type: Spontaneous
  Country: JP (occurrence: JP)
  Receive Date: 20140814
  Receipt Date: 20140814
  Transmission Date: 20150326
  Serious: Yes (Other)
  Sender: FDA-Public Use
  Company Number: JP-AMGEN-JPNSP2014061443

PATIENT
  Age: 65 Year
  Sex: Female

DRUGS (8)
  1. PIARLE [Concomitant]
     Dosage: UNK
     Route: 065
  2. DENOTAS [Concomitant]
     Active Substance: CALCIUM CARBONATE\CHOLECALCIFEROL\MAGNESIUM CARBONATE
     Dosage: UNK
     Route: 065
  3. PRALIA [Suspect]
     Active Substance: DENOSUMAB
     Indication: PRODUCT USED FOR UNKNOWN INDICATION
     Dosage: UNK
     Route: 023
     Dates: start: 20140117
  4. LOXONIN [Concomitant]
     Active Substance: LOXOPROFEN SODIUM
     Dosage: UNK
     Route: 065
  5. URSO [Concomitant]
     Active Substance: URSODIOL
     Dosage: UNK
     Route: 065
  6. FLOMOX                             /01418603/ [Concomitant]
     Dosage: 100 MG, TID
     Route: 065
  7. MUCOSTA [Concomitant]
     Active Substance: REBAMIPIDE
     Dosage: UNK
     Route: 065
  8. LIVACT                             /00847901/ [Concomitant]
     Dosage: UNK
     Route: 065

REACTIONS (1)
  - Breast abscess [Recovering/Resolving]

NARRATIVE: CASE EVENT DATE: 20140801
